FAERS Safety Report 5798002-6 (Version None)
Quarter: 2008Q3

REPORT INFORMATION
  Report Type: 
  Country: None (occurrence: None)
  Receive Date: 20080702
  Receipt Date: 20040720
  Transmission Date: 20090109
  Serious: Yes (Death)
  Sender: FDA-Public Use
  Company Number: B0338517A

PATIENT
  Age: 17 Year
  Sex: Female

DRUGS (3)
  1. HALOFANTRINE HYDROCHLORIDE [Suspect]
     Indication: MALARIA
     Dosage: 2TAB THREE TIMES PER DAY
     Route: 048
     Dates: start: 20040614, end: 20040615
  2. ACETAMINOPHEN [Concomitant]
     Indication: PAIN
     Dosage: 2TAB THREE TIMES PER DAY
     Route: 048
     Dates: start: 20040614, end: 20040615
  3. REFLUXIN [Concomitant]
     Dosage: 10ML THREE TIMES PER DAY
     Route: 048
     Dates: start: 20040614, end: 20040615

REACTIONS (2)
  - CIRCULATORY COLLAPSE [None]
  - SUDDEN DEATH [None]
